FAERS Safety Report 9387620 (Version 2)
Quarter: 2013Q3

REPORT INFORMATION
  Report Type: Spontaneous
  Country: NL (occurrence: NL)
  Receive Date: 20130708
  Receipt Date: 20130708
  Transmission Date: 20140515
  Serious: Yes (Hospitalization)
  Sender: FDA-Public Use
  Company Number: NL-PFIZER INC-2013197461

PATIENT
  Age: 72 Year
  Sex: Female
  Weight: 62 kg

DRUGS (7)
  1. EPIRUBICIN HCL [Suspect]
     Indication: GASTRIC CANCER
     Dosage: ACCORDING TO PROTOCOL FOR WEIGHT AND LENGTH (1 DOSAGE FORMS)
     Route: 042
     Dates: start: 20130613, end: 20130628
  2. CISPLATIN [Suspect]
     Indication: GASTRIC CANCER
     Dosage: ACCORDING TO PROTOCOL FOR WEIGHT AND LENGTH (1 DOSAGE FORMS)
     Route: 042
     Dates: start: 20130613, end: 20130628
  3. CAPECITABINE [Suspect]
     Indication: GASTRIC CANCER
     Dosage: ACCORDING TO PROTOCOL WEIGHT AND LENGTH (1 DOSAGE FORMS)
     Route: 042
     Dates: start: 20130613, end: 20130628
  4. ESOMEPRAZOLE MAGNESIUM [Concomitant]
     Dosage: 40 MG, 2X/DAY
     Route: 048
  5. LOPERAMIDE [Concomitant]
     Dosage: 1 DF, 6 TIMES PER DAY
     Route: 048
  6. METOCLOPRAMIDE [Concomitant]
     Dosage: 1 DF, AS NEEDED
     Route: 048
  7. PARACETAMOL [Concomitant]
     Dosage: 1000 MG, 4X/DAY
     Route: 048

REACTIONS (1)
  - Pneumatosis intestinalis [Recovering/Resolving]
